FAERS Safety Report 26209880 (Version 1)
Quarter: 2025Q4

REPORT INFORMATION
  Report Type: Spontaneous
  Country: US (occurrence: US)
  Receive Date: 20251229
  Receipt Date: 20251229
  Transmission Date: 20260118
  Serious: No
  Sender: PHARMING GROUP
  Company Number: US-PHARMING-PHAUS2025001732

PATIENT

DRUGS (2)
  1. RUCONEST [Suspect]
     Active Substance: CONESTAT ALFA
     Indication: Hereditary angioedema
     Dosage: 2450 IU, AS NEEDED
     Route: 042
     Dates: start: 201801
  2. KALBITOR [Concomitant]
     Active Substance: ECALLANTIDE
     Indication: Product used for unknown indication

REACTIONS (1)
  - Intrathecal pump insertion [Unknown]
